FAERS Safety Report 17953593 (Version 16)
Quarter: 2021Q1

REPORT INFORMATION
  Report Type: Spontaneous
  Country: CA (occurrence: CA)
  Receive Date: 20200628
  Receipt Date: 20210129
  Transmission Date: 20210419
  Serious: Yes (Other)
  Sender: FDA-Public Use
  Company Number: CA-CELLTRION INC.-2019CA028157

PATIENT

DRUGS (20)
  1. INFLECTRA [Suspect]
     Active Substance: INFLIXIMAB-DYYB
     Dosage: 300 MG (5MG/KG) AT 0, 2, 6 WEEKS, THE EVERY 8 WEEKS
     Route: 042
     Dates: start: 20200425
  2. INFLECTRA [Suspect]
     Active Substance: INFLIXIMAB-DYYB
     Dosage: 630MG EVERY 4 WEEKS
     Route: 042
     Dates: start: 20201114
  3. INFLECTRA [Suspect]
     Active Substance: INFLIXIMAB-DYYB
     Indication: COLITIS ULCERATIVE
     Dosage: 300 MG (5MG/KG) AT 0, 2, 6 WEEKS, THE EVERY 8 WEEKS
     Route: 042
     Dates: start: 20191118
  4. INFLECTRA [Suspect]
     Active Substance: INFLIXIMAB-DYYB
     Dosage: 300 MG (5MG/KG) AT 0, 2, 6 WEEKS, THE EVERY 8 WEEKS
     Route: 042
     Dates: start: 20191130, end: 20191130
  5. INFLECTRA [Suspect]
     Active Substance: INFLIXIMAB-DYYB
     Dosage: 5 MG/KG EVERY 4 WEEKS
     Route: 042
     Dates: start: 20200723
  6. IMURAN [Concomitant]
     Active Substance: AZATHIOPRINE
     Dosage: 50 MG, DAILY
  7. INFLECTRA [Suspect]
     Active Substance: INFLIXIMAB-DYYB
     Dosage: 300 MG (5MG/KG) AT 0, 2, 6 WEEKS, THE EVERY 8 WEEKS
     Route: 042
     Dates: start: 20191230, end: 20191230
  8. INFLECTRA [Suspect]
     Active Substance: INFLIXIMAB-DYYB
     Dosage: 350 MG EVERY 4 WEEKS
     Route: 042
     Dates: start: 20200720
  9. INFLECTRA [Suspect]
     Active Substance: INFLIXIMAB-DYYB
     Dosage: 650MG EVERY 4 WEEKS
     Route: 042
     Dates: start: 20201017
  10. INFLECTRA [Suspect]
     Active Substance: INFLIXIMAB-DYYB
     Dosage: 300 MG (5MG/KG) AT 0, 2, 6 WEEKS, THE EVERY 8 WEEKS
     Route: 042
     Dates: start: 20200620, end: 20200620
  11. INFLECTRA [Suspect]
     Active Substance: INFLIXIMAB-DYYB
     Dosage: 350MG EVERY 4 WEEKS
     Route: 042
     Dates: start: 20200819
  12. INFLECTRA [Suspect]
     Active Substance: INFLIXIMAB-DYYB
     Dosage: 630 MG EVERY 4 WEEKS
     Route: 042
     Dates: start: 20201212
  13. PENTASA [Concomitant]
     Active Substance: MESALAMINE
     Dosage: 4.8 G, 1X/DAY
     Route: 048
     Dates: start: 20191022
  14. INFLECTRA [Suspect]
     Active Substance: INFLIXIMAB-DYYB
     Dosage: 650 MG EVERY 4 WEEKS
     Route: 042
     Dates: start: 20201017, end: 20201017
  15. IMURAN [Concomitant]
     Active Substance: AZATHIOPRINE
     Dosage: 50 MG HS (BEDTIME)
     Route: 065
  16. PREDNISONE. [Concomitant]
     Active Substance: PREDNISONE
     Dosage: 35 MG, 1X/DAY
     Route: 048
     Dates: start: 2019
  17. INFLECTRA [Suspect]
     Active Substance: INFLIXIMAB-DYYB
     Dosage: 350MG EVERY 4 WEEKS
     Route: 042
     Dates: start: 20200919, end: 20200919
  18. PENTASA [Concomitant]
     Active Substance: MESALAMINE
     Dosage: 4.8 G, 1X/DAY
     Route: 048
     Dates: start: 20191022
  19. INFLECTRA [Suspect]
     Active Substance: INFLIXIMAB-DYYB
     Dosage: 300 MG (5MG/KG) AT 0, 2, 6 WEEKS, THE EVERY 8 WEEKS
     Route: 042
     Dates: start: 20200229, end: 20200620
  20. PENTASA [Concomitant]
     Active Substance: MESALAMINE
     Dosage: 4 G, 1X/DAY

REACTIONS (6)
  - Therapeutic response shortened [Unknown]
  - Condition aggravated [Recovering/Resolving]
  - Drug level above therapeutic [Unknown]
  - Off label use [Unknown]
  - Anal fissure [Not Recovered/Not Resolved]
  - Crohn^s disease [Unknown]

NARRATIVE: CASE EVENT DATE: 20200620
